FAERS Safety Report 13071828 (Version 1)
Quarter: 2016Q4

REPORT INFORMATION
  Report Type: Spontaneous
  Country: US (occurrence: US)
  Receive Date: 20161228
  Receipt Date: 20161228
  Transmission Date: 20170207
  Serious: Yes (Other)
  Sender: FDA-Public Use
  Company Number: None

PATIENT
  Age: 51 Year
  Sex: Female

DRUGS (9)
  1. TROSPIUM [Concomitant]
     Active Substance: TROSPIUM
  2. RIZATRIPTAN. [Concomitant]
     Active Substance: RIZATRIPTAN
  3. OXYBUTYNIN [Concomitant]
     Active Substance: OXYBUTYNIN
  4. DIVALPROEX [Concomitant]
     Active Substance: DIVALPROEX SODIUM
  5. AMPYRA [Suspect]
     Active Substance: DALFAMPRIDINE
     Indication: MULTIPLE SCLEROSIS
     Route: 048
     Dates: start: 201101
  6. TOPIRAMATE. [Concomitant]
     Active Substance: TOPIRAMATE
  7. BACLOFEN. [Concomitant]
     Active Substance: BACLOFEN
  8. QUETIAPINE. [Concomitant]
     Active Substance: QUETIAPINE
  9. TAMSULOSIN [Concomitant]
     Active Substance: TAMSULOSIN

REACTIONS (2)
  - Laboratory test abnormal [None]
  - Escherichia urinary tract infection [None]

NARRATIVE: CASE EVENT DATE: 20161208
